FAERS Safety Report 15858064 (Version 1)
Quarter: 2018Q4

REPORT INFORMATION
  Report Type: Spontaneous
  Country: US (occurrence: US)
  Receive Date: 20181227
  Receipt Date: 20181227
  Transmission Date: 20190205
  Serious: No
  Sender: FDA-Public Use
  Company Number: None

PATIENT
  Age: 77 Year
  Sex: Male

DRUGS (1)
  1. ENBREL [Suspect]
     Active Substance: ETANERCEPT
     Dosage: OTHER?
     Route: 058
     Dates: start: 201612

REACTIONS (3)
  - Pruritus [None]
  - Rash [None]
  - Therapy non-responder [None]

NARRATIVE: CASE EVENT DATE: 20181227
